FAERS Safety Report 18831538 (Version 3)
Quarter: 2023Q2

REPORT INFORMATION
  Report Type: Spontaneous
  Country: US (occurrence: US)
  Receive Date: 20210203
  Receipt Date: 20230517
  Transmission Date: 20230721
  Serious: Yes (Other)
  Sender: FDA-Public Use
  Company Number: US-GILEAD-2021-0515580

PATIENT
  Sex: Male
  Weight: 104.31 kg

DRUGS (83)
  1. ATRIPLA [Suspect]
     Active Substance: EFAVIRENZ\EMTRICITABINE\TENOFOVIR DISOPROXIL FUMARATE
     Indication: HIV infection
     Dosage: UNK
     Route: 048
     Dates: start: 2010
  2. ATRIPLA [Suspect]
     Active Substance: EFAVIRENZ\EMTRICITABINE\TENOFOVIR DISOPROXIL FUMARATE
     Dosage: UNK
     Route: 065
     Dates: start: 2006, end: 2014
  3. ATRIPLA [Suspect]
     Active Substance: EFAVIRENZ\EMTRICITABINE\TENOFOVIR DISOPROXIL FUMARATE
     Dosage: UNK
     Route: 048
     Dates: start: 201205, end: 201407
  4. COMPLERA [Suspect]
     Active Substance: EMTRICITABINE\RILPIVIRINE HYDROCHLORIDE\TENOFOVIR DISOPROXIL FUMARATE
     Indication: HIV infection
     Dosage: UNK
     Route: 048
     Dates: start: 2010
  5. COMPLERA [Suspect]
     Active Substance: EMTRICITABINE\RILPIVIRINE HYDROCHLORIDE\TENOFOVIR DISOPROXIL FUMARATE
     Dosage: UNK
     Route: 065
     Dates: start: 201407, end: 201606
  6. BIKTARVY [Concomitant]
     Active Substance: BICTEGRAVIR SODIUM\EMTRICITABINE\TENOFOVIR ALAFENAMIDE FUMARATE
  7. ODEFSEY [Concomitant]
     Active Substance: EMTRICITABINE\RILPIVIRINE HYDROCHLORIDE\TENOFOVIR ALAFENAMIDE FUMARATE
  8. DOXYCYCLINE [Concomitant]
     Active Substance: DOXYCYCLINE
  9. ALBUTEROL [Concomitant]
     Active Substance: ALBUTEROL
  10. ANALPRAM E [Concomitant]
     Active Substance: HYDROCORTISONE ACETATE\PRAMOXINE HYDROCHLORIDE
  11. ANDROGEL [Concomitant]
     Active Substance: TESTOSTERONE
  12. ANUCORT-HC [Concomitant]
     Active Substance: HYDROCORTISONE ACETATE
  13. APAP [Concomitant]
     Active Substance: ACETAMINOPHEN
  14. ASPIRIN [Concomitant]
     Active Substance: ASPIRIN
  15. ATORVASTATIN [Concomitant]
     Active Substance: ATORVASTATIN
  16. AZITHROMYCIN [Concomitant]
     Active Substance: AZITHROMYCIN
  17. BACITRACIN [Concomitant]
     Active Substance: BACITRACIN
  18. BENZONATATE [Concomitant]
     Active Substance: BENZONATATE
  19. BUPROPION [Concomitant]
     Active Substance: BUPROPION
  20. BUSPIRONE [Concomitant]
     Active Substance: BUSPIRONE HYDROCHLORIDE
  21. CALMOSEPTINE [ZINC OXIDE] [Concomitant]
  22. CEFTRIAXONE [Concomitant]
     Active Substance: CEFTRIAXONE
  23. CHLORHEXIDINE [Concomitant]
     Active Substance: CHLORHEXIDINE
  24. CIALIS [Concomitant]
     Active Substance: TADALAFIL
  25. CIPROFLOXACIN [Concomitant]
     Active Substance: CIPROFLOXACIN
  26. CLOTRIMAZOLE [Concomitant]
     Active Substance: CLOTRIMAZOLE
  27. CYCLOBENZAPRINE [Concomitant]
     Active Substance: CYCLOBENZAPRINE
  28. DEXAMETHASONE [Concomitant]
     Active Substance: DEXAMETHASONE
  29. DESOXIMETASONE [Concomitant]
     Active Substance: DESOXIMETASONE
  30. DICYCLOMINE HYDROCHLORIDE [Concomitant]
     Active Substance: DICYCLOMINE HYDROCHLORIDE
  31. DOCQLACE [Concomitant]
     Active Substance: DOCUSATE SODIUM
  32. DOCUSATE [Concomitant]
     Active Substance: DOCUSATE
  33. DULOXETINE [Concomitant]
     Active Substance: DULOXETINE
  34. ENDOCET [Concomitant]
     Active Substance: ACETAMINOPHEN\OXYCODONE HYDROCHLORIDE
  35. TAMSULOSIN HYDROCHLORIDE [Concomitant]
     Active Substance: TAMSULOSIN HYDROCHLORIDE
  36. GABAPENTIN [Concomitant]
     Active Substance: GABAPENTIN
  37. GUAIFENESIN [Concomitant]
     Active Substance: GUAIFENESIN
  38. HYDROCODONE [Concomitant]
     Active Substance: HYDROCODONE
  39. HYDROCORTISONE [Concomitant]
     Active Substance: HYDROCORTISONE
  40. IBUPROFEN [Concomitant]
     Active Substance: IBUPROFEN
  41. KETOCONAZOLE [Concomitant]
     Active Substance: KETOCONAZOLE
  42. LIDOCAINE [Concomitant]
     Active Substance: LIDOCAINE
  43. MAPAP [Concomitant]
     Active Substance: ACETAMINOPHEN
  44. MELOXICAM [Concomitant]
     Active Substance: MELOXICAM
  45. METFORMIN [Concomitant]
     Active Substance: METFORMIN HYDROCHLORIDE
  46. METHYLPREDNISOLONE [Concomitant]
     Active Substance: METHYLPREDNISOLONE
  47. MICROLET [ETHINYLESTRADIOL;GESTODENE] [Concomitant]
  48. MIRTAZAPINE [Concomitant]
     Active Substance: MIRTAZAPINE
  49. MORPHINE [Concomitant]
     Active Substance: MORPHINE
  50. MUCINEX [Concomitant]
     Active Substance: GUAIFENESIN
  51. VITAMINS [Concomitant]
     Active Substance: VITAMINS
  52. MUPIROCIN [Concomitant]
     Active Substance: MUPIROCIN
  53. NAPROXEN [Concomitant]
     Active Substance: NAPROXEN
  54. NITROFURANTOIN [Concomitant]
     Active Substance: NITROFURANTOIN
  55. OXYCODONE [Concomitant]
     Active Substance: OXYCODONE
  56. OXYCONTIN [Concomitant]
     Active Substance: OXYCODONE HYDROCHLORIDE
  57. PEG 3350 [Concomitant]
     Active Substance: POLYETHYLENE GLYCOL 3350
  58. PODOFILOX [Concomitant]
     Active Substance: PODOFILOX
  59. HIGH DENSITY POLYETHYLENE [Concomitant]
     Active Substance: HIGH DENSITY POLYETHYLENE
  60. PRAMCORT [Concomitant]
     Active Substance: HYDROCORTISONE ACETATE\PRAMOXINE HYDROCHLORIDE
  61. PRAMOXINE-HC [Concomitant]
     Active Substance: CHLOROXYLENOL\HYDROCORTISONE\PRAMOXINE HYDROCHLORIDE
  62. PROCTOZONE HC [Concomitant]
     Active Substance: HYDROCORTISONE
  63. PREDNISONE [Concomitant]
     Active Substance: PREDNISONE
  64. ACETAMINOPHEN [Concomitant]
     Active Substance: ACETAMINOPHEN
  65. REGULOID [Concomitant]
     Active Substance: PSYLLIUM HUSK
  66. SMZ (CO) [Concomitant]
  67. SELENIUM [Concomitant]
     Active Substance: SELENIUM
  68. SILVER SULFADIAZINE [Concomitant]
     Active Substance: SILVER SULFADIAZINE
  69. SULFAMETHOXAZOLE [Concomitant]
     Active Substance: SULFAMETHOXAZOLE
  70. TAMSULOSIN [Concomitant]
     Active Substance: TAMSULOSIN
  71. TERBINAFINE [Concomitant]
     Active Substance: TERBINAFINE
  72. TOLTERODINE [Concomitant]
     Active Substance: TOLTERODINE
  73. DESOXIMETASONE [Concomitant]
     Active Substance: DESOXIMETASONE
  74. TOPIRAMATE [Concomitant]
     Active Substance: TOPIRAMATE
  75. TRAZODONE [Concomitant]
     Active Substance: TRAZODONE HYDROCHLORIDE
  76. TRIAMCINOLONE [Concomitant]
     Active Substance: TRIAMCINOLONE
  77. VALACYCLOVIR HYDROCHLORIDE [Concomitant]
     Active Substance: VALACYCLOVIR HYDROCHLORIDE
  78. VIAGRA [Concomitant]
     Active Substance: SILDENAFIL CITRATE
  79. VICTOZA [Concomitant]
     Active Substance: LIRAGLUTIDE
  80. WAL DRYL [Concomitant]
  81. WELLBUTRIN [Concomitant]
     Active Substance: BUPROPION HYDROCHLORIDE
  82. HYDROXYZINE [Concomitant]
     Active Substance: HYDROXYZINE HYDROCHLORIDE
  83. ZINC OXIDE [Concomitant]
     Active Substance: ZINC OXIDE

REACTIONS (8)
  - Chronic kidney disease [Not Recovered/Not Resolved]
  - Renal injury [Unknown]
  - Pain [Not Recovered/Not Resolved]
  - Emotional distress [Not Recovered/Not Resolved]
  - Anxiety [Not Recovered/Not Resolved]
  - Anhedonia [Not Recovered/Not Resolved]
  - Hypertension [Not Recovered/Not Resolved]
  - Anaemia [Not Recovered/Not Resolved]

NARRATIVE: CASE EVENT DATE: 20080101
